FAERS Safety Report 5491098-0 (Version None)
Quarter: 2007Q4

REPORT INFORMATION
  Report Type: 
  Country: None (occurrence: None)
  Receive Date: 20071019
  Receipt Date: 20071008
  Transmission Date: 20080405
  Serious: Yes (Other)
  Sender: FDA-Public Use
  Company Number: US-PFIZER INC-2007066459

PATIENT
  Sex: Female
  Weight: 143.6 kg

DRUGS (11)
  1. LYRICA [Suspect]
     Indication: FIBROMYALGIA
     Dosage: DAILY DOSE:75MG
     Route: 048
     Dates: start: 20070808, end: 20070101
  2. PERCOCET [Concomitant]
     Indication: GLAUCOMA
  3. BACLOFEN [Concomitant]
  4. TOPAMAX [Concomitant]
  5. LEXAPRO [Concomitant]
  6. LAMICTAL [Concomitant]
  7. TRAMADOL HCL [Concomitant]
  8. XANAX [Concomitant]
  9. LAXATIVES [Concomitant]
  10. IBUPROFEN [Concomitant]
  11. HYDROCHLOROTHIAZIDE [Concomitant]
     Indication: HYPERTENSION

REACTIONS (7)
  - ASTHENOPIA [None]
  - BALANCE DISORDER [None]
  - BLOOD PRESSURE INCREASED [None]
  - DIZZINESS [None]
  - OEDEMA PERIPHERAL [None]
  - VERTIGO POSITIONAL [None]
  - VISION BLURRED [None]
